FAERS Safety Report 5739307 (Version 18)
Quarter: 2014Q4

REPORT INFORMATION
  Report Type: Spontaneous
  Country: US (occurrence: US)
  Receive Date: 20050215
  Receipt Date: 20141104
  Transmission Date: 20150529
  Serious: Yes (Hospitalization, Disabling)
  Sender: FDA-Public Use
  Company Number: US-ROCHE-394835

PATIENT
  Sex: Female
  Weight: 53.1 kg

DRUGS (4)
  1. IBUPROFEN. [Concomitant]
     Active Substance: IBUPROFEN
     Route: 065
     Dates: start: 200402, end: 200402
  2. ACCUTANE [Suspect]
     Active Substance: ISOTRETINOIN
     Indication: ACNE CYSTIC
     Route: 048
  3. ACCUTANE [Suspect]
     Active Substance: ISOTRETINOIN
     Route: 048
  4. ACCUTANE [Suspect]
     Active Substance: ISOTRETINOIN
     Route: 048

REACTIONS (22)
  - Blood oestrogen decreased [Recovered/Resolved]
  - Fatigue [Unknown]
  - Colitis [Unknown]
  - Inflammatory bowel disease [Unknown]
  - Chapped lips [Unknown]
  - Anxiety [Unknown]
  - Intestinal haemorrhage [Unknown]
  - Gastrointestinal disorder [Unknown]
  - Rectal haemorrhage [Unknown]
  - Pruritus [Unknown]
  - Drug hypersensitivity [Unknown]
  - Blood testosterone decreased [Recovered/Resolved]
  - Libido decreased [Unknown]
  - Haematochezia [Unknown]
  - Nausea [Unknown]
  - Internal injury [Unknown]
  - Abdominal pain [Unknown]
  - Weight decreased [Unknown]
  - Anaemia [Recovering/Resolving]
  - Colitis [Recovering/Resolving]
  - Contact lens intolerance [Unknown]
  - Vomiting [Unknown]

NARRATIVE: CASE EVENT DATE: 2002
